FAERS Safety Report 18579431 (Version 1)
Quarter: 2020Q4

REPORT INFORMATION
  Report Type: Report from Study
  Country: None (occurrence: US)
  Receive Date: 20201204
  Receipt Date: 20201204
  Transmission Date: 20210114
  Serious: Yes (Life-Threatening)
  Sender: FDA-Public Use
  Company Number: US-CLINIGEN GROUP PLC/ CLINIGEN HEALTHCARE LTD-US-CLGN-20-00536

PATIENT
  Age: 39 Year
  Sex: Female
  Weight: 53 kg

DRUGS (4)
  1. PROLEUKIN [Suspect]
     Active Substance: ALDESLEUKIN
     Indication: CERVIX CARCINOMA
     Route: 042
     Dates: start: 20201103, end: 20201105
  2. LN-145 [Suspect]
     Active Substance: LIFILEUCEL
     Indication: CERVIX CARCINOMA
     Dosage: TWO BAGS
     Route: 042
     Dates: start: 20201102, end: 20201102
  3. FLUDARABINE [Suspect]
     Active Substance: FLUDARABINE PHOSPHATE
     Indication: CERVIX CARCINOMA
     Route: 042
     Dates: start: 20201028, end: 20201101
  4. CYCLOPHOSPHAMIDE. [Suspect]
     Active Substance: CYCLOPHOSPHAMIDE
     Indication: CERVIX CARCINOMA
     Route: 042
     Dates: start: 20201026, end: 20201027

REACTIONS (1)
  - Immune effector cell-associated neurotoxicity syndrome [Recovered/Resolved]

NARRATIVE: CASE EVENT DATE: 20201108
